FAERS Safety Report 26177203 (Version 1)
Quarter: 2025Q4

REPORT INFORMATION
  Report Type: Spontaneous
  Country: US (occurrence: US)
  Receive Date: 20251219
  Receipt Date: 20251219
  Transmission Date: 20260117
  Serious: No
  Sender: SANOFI AVENTIS
  Company Number: US-SA-2025SA317977

PATIENT
  Age: 73 Year
  Sex: Male
  Weight: 84.09 kg

DRUGS (13)
  1. DUPIXENT [Suspect]
     Active Substance: DUPILUMAB
     Indication: Ill-defined disorder
     Dosage: 300 MG, QOW
     Route: 058
     Dates: end: 202510
  2. NEILMED SINUS RINSE [Concomitant]
     Active Substance: SODIUM BICARBONATE\SODIUM CHLORIDE
  3. LOSARTAN POTASSIUM [Concomitant]
     Active Substance: LOSARTAN POTASSIUM
  4. PRAVASTATIN SODIUM [Concomitant]
     Active Substance: PRAVASTATIN SODIUM
  5. ASPIRIN [Concomitant]
     Active Substance: ASPIRIN
  6. PROLIA [Concomitant]
     Active Substance: DENOSUMAB
     Dosage: SYRINGE
  7. TRELEGY ELLIPTA [Concomitant]
     Active Substance: FLUTICASONE FUROATE\UMECLIDINIUM BROMIDE\VILANTEROL TRIFENATATE
  8. ALBUTEROL SULFATE [Concomitant]
     Active Substance: ALBUTEROL SULFATE
  9. GEMFIBROZIL [Concomitant]
     Active Substance: GEMFIBROZIL
  10. MUCINEX [Concomitant]
     Active Substance: GUAIFENESIN
     Dosage: 20 ML
  11. BIOTIN [Concomitant]
     Active Substance: BIOTIN
     Dosage: 15 ML
  12. CYANOCOBALAMIN [Concomitant]
     Active Substance: CYANOCOBALAMIN
  13. XOLAIR [Concomitant]
     Active Substance: OMALIZUMAB

REACTIONS (1)
  - Vitreous floaters [Not Recovered/Not Resolved]
